FAERS Safety Report 10533498 (Version 1)
Quarter: 2014Q4

REPORT INFORMATION
  Report Type: Spontaneous
  Country: CN (occurrence: CN)
  Receive Date: 20141022
  Receipt Date: 20141022
  Transmission Date: 20150529
  Serious: Yes (Hospitalization)
  Sender: FDA-Public Use
  Company Number: PHHY2014CN137759

PATIENT
  Age: 39 Year
  Sex: Male

DRUGS (4)
  1. ALLOPURINOL. [Concomitant]
     Active Substance: ALLOPURINOL
     Indication: PRODUCT USED FOR UNKNOWN INDICATION
     Dosage: 0.1 G, TID
     Route: 048
     Dates: start: 20140423
  2. TRIMETAZIDINE [Concomitant]
     Active Substance: TRIMETAZIDINE
     Indication: PRODUCT USED FOR UNKNOWN INDICATION
     Dosage: 20 MG, TID
     Route: 048
     Dates: start: 20140423
  3. METOPROLOL [Concomitant]
     Active Substance: METOPROLOL
     Indication: PRODUCT USED FOR UNKNOWN INDICATION
     Dosage: 23.75 MG, QD
     Route: 048
     Dates: start: 20140423
  4. FLUVASTATIN [Suspect]
     Active Substance: FLUVASTATIN SODIUM
     Indication: LIPIDS ABNORMAL
     Dosage: 80 MG, QD
     Route: 048
     Dates: start: 20140423, end: 20140504

REACTIONS (6)
  - Alanine aminotransferase increased [Recovered/Resolved]
  - Blood lactate dehydrogenase increased [Recovered/Resolved]
  - Hyperbilirubinaemia [Recovered/Resolved]
  - Aspartate aminotransferase increased [Recovered/Resolved]
  - Blood alkaline phosphatase increased [Recovered/Resolved]
  - Gamma-glutamyltransferase increased [Recovered/Resolved]

NARRATIVE: CASE EVENT DATE: 20140504
